FAERS Safety Report 7877870-8 (Version None)
Quarter: 2011Q4

REPORT INFORMATION
  Report Type: 
  Country: None (occurrence: None)
  Receive Date: 20111031
  Receipt Date: 20111031
  Transmission Date: 20120403
  Serious: Yes (Life-Threatening)
  Sender: FDA-Public Use
  Company Number: None

PATIENT
  Sex: Male
  Weight: 88.45 kg

DRUGS (1)
  1. ZOLPIDEM TARTRATE [Suspect]
     Indication: INSOMNIA
     Dosage: 30MG
     Route: 048
     Dates: start: 20111028, end: 20111029

REACTIONS (7)
  - ABNORMAL BEHAVIOUR [None]
  - DRUG INEFFECTIVE [None]
  - ABNORMAL SLEEP-RELATED EVENT [None]
  - FACE INJURY [None]
  - GAIT DISTURBANCE [None]
  - AMNESIA [None]
  - SOMNAMBULISM [None]
